FAERS Safety Report 7106622-1 (Version None)
Quarter: 2010Q4

REPORT INFORMATION
  Report Type: 
  Country: None (occurrence: None)
  Receive Date: 20101116
  Receipt Date: 20100908
  Transmission Date: 20110411
  Serious: No
  Sender: FDA-Public Use
  Company Number: US-ABBOTT-10P-163-0670421-00

PATIENT
  Sex: Female
  Weight: 62.652 kg

DRUGS (3)
  1. SIMCOR [Suspect]
     Indication: STENT PLACEMENT
     Dosage: 500/20 MG AT BEDTIME
     Dates: start: 20100801
  2. ASPIRIN [Concomitant]
     Indication: PRODUCT USED FOR UNKNOWN INDICATION
     Dosage: AT BEDTIME
  3. BLOOD PRESSURE MEDICATION [Concomitant]
     Indication: PRODUCT USED FOR UNKNOWN INDICATION

REACTIONS (1)
  - ASTHENIA [None]
